FAERS Safety Report 9665990 (Version 1)
Quarter: 2013Q4

REPORT INFORMATION
  Report Type: Report from Study
  Country: US (occurrence: US)
  Receive Date: 20131104
  Receipt Date: 20131104
  Transmission Date: 20140711
  Serious: Yes (Hospitalization, Other)
  Sender: FDA-Public Use
  Company Number: US-US-EMD SERONO, INC.-7246690

PATIENT
  Age: 54 Year
  Sex: Female

DRUGS (1)
  1. REBIF [Suspect]
     Indication: PRODUCT USED FOR UNKNOWN INDICATION
     Route: 058
     Dates: start: 20090514

REACTIONS (10)
  - Arthropathy [Unknown]
  - Gastrointestinal disorder [Unknown]
  - Ovarian cyst [Unknown]
  - Endometriosis [Unknown]
  - Ovarian cyst ruptured [Unknown]
  - Arthropathy [Unknown]
  - Dysuria [Unknown]
  - Hernia [Unknown]
  - Urinary tract disorder [Recovered/Resolved]
  - Injection site bruising [Not Recovered/Not Resolved]
